FAERS Safety Report 25895287 (Version 1)
Quarter: 2025Q4

REPORT INFORMATION
  Report Type: Report from Study
  Country: RS (occurrence: RS)
  Receive Date: 20251008
  Receipt Date: 20251008
  Transmission Date: 20260117
  Serious: Yes (Other)
  Sender: UCB
  Company Number: RS-UCBSA-2025062619

PATIENT

DRUGS (1)
  1. LEVETIRACETAM [Suspect]
     Active Substance: LEVETIRACETAM
     Indication: Epilepsy
     Dosage: UNK

REACTIONS (10)
  - Acute hepatic failure [Unknown]
  - Hepatic cytolysis [Unknown]
  - Cholestasis [Unknown]
  - Cholestatic liver injury [Unknown]
  - Hepatitis acute [Unknown]
  - Mixed liver injury [Unknown]
  - Gamma-glutamyltransferase increased [Unknown]
  - Hepatic enzyme increased [Unknown]
  - Hyperammonaemia [Unknown]
  - Liver function test increased [Unknown]
